FAERS Safety Report 5986065-4 (Version None)
Quarter: 2008Q4

REPORT INFORMATION
  Report Type: 
  Country: None (occurrence: None)
  Receive Date: 20081205
  Receipt Date: 20081205
  Transmission Date: 20090506
  Serious: Yes (Death, Hospitalization)
  Sender: FDA-Public Use
  Company Number: None

PATIENT
  Sex: Male

DRUGS (8)
  1. REVLIMID [Suspect]
     Dosage: 25MG DAILY ORALLY
     Route: 048
     Dates: start: 20080901, end: 20081001
  2. INSULIN [Concomitant]
  3. SIMVASTATIN [Concomitant]
  4. AMLODIPINE [Concomitant]
  5. PERCOCET [Concomitant]
  6. BRIMONIDINE [Concomitant]
  7. COSOPT [Concomitant]
  8. THALOMID [Concomitant]

REACTIONS (6)
  - DYSPNOEA [None]
  - EPISTAXIS [None]
  - HAEMATEMESIS [None]
  - HAEMOPTYSIS [None]
  - PYREXIA [None]
  - STREPTOCOCCAL INFECTION [None]
